FAERS Safety Report 6112827-9 (Version None)
Quarter: 2009Q1

REPORT INFORMATION
  Report Type: 
  Country: None (occurrence: None)
  Receive Date: 20090312
  Receipt Date: 20090305
  Transmission Date: 20090719
  Serious: Yes (Other)
  Sender: FDA-Public Use
  Company Number: CH-ASTRAZENECA-2009PK00783

PATIENT
  Age: 88 Year
  Sex: Female
  Weight: 57.8 kg

DRUGS (13)
  1. NEXIUM [Suspect]
     Indication: ABDOMINAL PAIN UPPER
     Route: 048
     Dates: start: 20081129, end: 20081212
  2. NEXIUM [Interacting]
     Indication: HIATUS HERNIA
     Route: 048
     Dates: start: 20081129, end: 20081212
  3. SINTROM [Interacting]
     Route: 048
     Dates: end: 20081217
  4. NOROXIN [Interacting]
     Route: 048
     Dates: start: 20081024, end: 20081029
  5. CO-AMOXL [Concomitant]
     Route: 048
     Dates: start: 20081201, end: 20081210
  6. BRUFEN [Concomitant]
     Dates: start: 20081120, end: 20081121
  7. CONCOR [Concomitant]
  8. EUTHYROX [Concomitant]
  9. TRITTICO [Concomitant]
  10. MAGNESIUM SULFATE [Concomitant]
  11. FUROSEMIDE [Concomitant]
  12. OMED [Concomitant]
  13. EBIXA [Concomitant]

REACTIONS (2)
  - DRUG INTERACTION [None]
  - INTERNATIONAL NORMALISED RATIO INCREASED [None]
